FAERS Safety Report 5420168-8 (Version None)
Quarter: 2007Q3

REPORT INFORMATION
  Report Type: 
  Country: None (occurrence: None)
  Receive Date: 20070820
  Receipt Date: 20070817
  Transmission Date: 20080115
  Serious: Yes (Death, Other)
  Sender: FDA-Public Use
  Company Number: KE-BOEHRINGER INGELHEIM PHARMACEUTICALS, INC.-2007-BP-19458BP

PATIENT
  Age: 46 Year
  Sex: Female
  Weight: 41.5 kg

DRUGS (5)
  1. VIRAMUNE [Suspect]
     Indication: HIV INFECTION
     Route: 048
     Dates: start: 20070625
  2. TRUVADA [Suspect]
     Indication: HIV INFECTION
     Route: 048
     Dates: start: 20070625
  3. COTRIM [Concomitant]
     Route: 048
  4. PLASIL [Concomitant]
     Indication: MALARIA
  5. FANSIDAR [Concomitant]
     Indication: MALARIA

REACTIONS (4)
  - COORDINATION ABNORMAL [None]
  - DEATH [None]
  - MENTAL STATUS CHANGES [None]
  - RENAL FAILURE ACUTE [None]
